FAERS Safety Report 9420070 (Version 3)
Quarter: 2013Q4

REPORT INFORMATION
  Report Type: Spontaneous
  Country: US (occurrence: US)
  Receive Date: 20130725
  Receipt Date: 20131021
  Transmission Date: 20140711
  Serious: Yes (Hospitalization)
  Sender: FDA-Public Use
  Company Number: US-GLAXOSMITHKLINE-A1034373A

PATIENT
  Age: 66 Year
  Sex: Female
  Weight: 59.1 kg

DRUGS (13)
  1. LOVAZA [Suspect]
     Indication: BLOOD TRIGLYCERIDES INCREASED
     Dosage: 2G TWICE PER DAY
     Route: 048
     Dates: start: 20121119, end: 20130504
  2. AMITRIPTYLINE [Concomitant]
  3. NYSTATIN [Concomitant]
  4. LEVOTHYROXINE [Concomitant]
  5. MICONAZOLE [Concomitant]
  6. AURALGAN [Concomitant]
  7. ASCRIPTIN [Concomitant]
  8. ALBUTEROL SULFATE [Concomitant]
  9. XOPENEX [Concomitant]
  10. SPIRIVA [Concomitant]
  11. ADVAIR DISKUS [Concomitant]
  12. VENTOLIN HFA [Concomitant]
  13. PREDNISONE [Concomitant]

REACTIONS (26)
  - Enterocolitis haemorrhagic [Recovered/Resolved]
  - Colonoscopy [Recovered/Resolved]
  - Colostomy [Unknown]
  - Large intestinal haemorrhage [Recovering/Resolving]
  - Onychomycosis [Unknown]
  - Rectal discharge [Recovering/Resolving]
  - Proctalgia [Unknown]
  - Gastric disorder [Unknown]
  - Oesophageal injury [Unknown]
  - Candida infection [Unknown]
  - Fungal infection [Unknown]
  - Oral discomfort [Unknown]
  - Anorectal discomfort [Unknown]
  - Vulvovaginal burning sensation [Unknown]
  - Weight decreased [Recovering/Resolving]
  - Decreased appetite [Unknown]
  - Abdominal pain upper [Unknown]
  - Gastrooesophageal reflux disease [Unknown]
  - Gastrointestinal mucosal disorder [Unknown]
  - Onychomadesis [Unknown]
  - Defaecation urgency [Recovering/Resolving]
  - Aphagia [Recovering/Resolving]
  - Diarrhoea [Recovering/Resolving]
  - Medical device complication [Recovering/Resolving]
  - Gastrointestinal pain [Recovering/Resolving]
  - Burning sensation mucosal [Recovering/Resolving]
